FAERS Safety Report 6680909-9 (Version None)
Quarter: 2010Q2

REPORT INFORMATION
  Report Type: 
  Country: None (occurrence: None)
  Receive Date: 20100413
  Receipt Date: 20100413
  Transmission Date: 20101027
  Serious: Yes (Life-Threatening)
  Sender: FDA-Public Use
  Company Number: None

PATIENT
  Age: 19 Year
  Sex: Female
  Weight: 68.0396 kg

DRUGS (1)
  1. PROAIR HFA [Suspect]
     Indication: ASTHMA EXERCISE INDUCED
     Dosage: 2 PUFFS EVERY 4 HOURS AS NEED, 1 USE
     Dates: start: 20100120, end: 20100121

REACTIONS (2)
  - CONDITION AGGRAVATED [None]
  - DYSPNOEA EXERTIONAL [None]
